FAERS Safety Report 12977406 (Version 1)
Quarter: 2016Q4

REPORT INFORMATION
  Report Type: Spontaneous
  Country: US (occurrence: US)
  Receive Date: 20161128
  Receipt Date: 20161128
  Transmission Date: 20170207
  Serious: No
  Sender: FDA-Public Use
  Company Number: US-NOVEL LABORATORIES, INC-2016-02858

PATIENT
  Age: 95 Year
  Sex: Female
  Weight: 61.29 kg

DRUGS (1)
  1. CLEARLAX [Suspect]
     Active Substance: POLYETHYLENE GLYCOL 3350
     Indication: CONSTIPATION
     Dosage: 1 CAPFULL
     Route: 065

REACTIONS (1)
  - Renal disorder [Unknown]
